FAERS Safety Report 17306818 (Version 1)
Quarter: 2020Q1

REPORT INFORMATION
  Report Type: Spontaneous
  Country: US (occurrence: US)
  Receive Date: 20200123
  Receipt Date: 20200123
  Transmission Date: 20200409
  Serious: Yes (Other)
  Sender: FDA-Public Use
  Company Number: US-DERMIRA, INC.-US-2019DER000517

PATIENT
  Age: 28 Year
  Sex: Male
  Weight: 77.98 kg

DRUGS (1)
  1. QBREXZA [Suspect]
     Active Substance: GLYCOPYRRONIUM TOSYLATE
     Indication: HYPERHIDROSIS
     Dosage: UNK, QD
     Route: 061
     Dates: start: 20191022, end: 20191023

REACTIONS (4)
  - Dry mouth [Recovered/Resolved]
  - Urinary retention [Recovered/Resolved]
  - Blood urine present [Recovered/Resolved]
  - Vision blurred [Recovered/Resolved]

NARRATIVE: CASE EVENT DATE: 20191023
